FAERS Safety Report 9301986 (Version 3)
Quarter: 2013Q2

REPORT INFORMATION
  Report Type: Spontaneous
  Country: JP (occurrence: JP)
  Receive Date: 20130521
  Receipt Date: 20130614
  Transmission Date: 20140414
  Serious: Yes (Hospitalization)
  Sender: FDA-Public Use
  Company Number: JP-B.I. PHARMACEUTICALS,INC./RIDGEFIELD-2013-BI-12968NB

PATIENT
  Sex: 0

DRUGS (1)
  1. SIFROL [Suspect]
     Dosage: 1.875 MG
     Route: 065

REACTIONS (2)
  - Orthopaedic procedure [Unknown]
  - Inappropriate schedule of drug administration [Unknown]
